FAERS Safety Report 4387233-8 (Version None)
Quarter: 2004Q2

REPORT INFORMATION
  Report Type: 
  Country: None (occurrence: None)
  Receive Date: 20040630
  Receipt Date: 20040326
  Transmission Date: 20050107
  Serious: No
  Sender: FDA-Public Use
  Company Number: US-GLAXOSMITHKLINE-A0504859A

PATIENT
  Age: 47 Year
  Sex: Female

DRUGS (7)
  1. ADVAIR HFA [Suspect]
     Indication: ASTHMA
     Route: 055
  2. NEXIUM [Concomitant]
     Route: 065
  3. LOTREL [Concomitant]
     Route: 065
  4. VALTREX [Concomitant]
     Route: 048
  5. ALBUTEROL [Concomitant]
     Route: 055
  6. TAMOXIFEN [Concomitant]
     Route: 065
  7. VITAMIN E [Concomitant]
     Route: 065

REACTIONS (1)
  - MUSCLE CRAMP [None]
